FAERS Safety Report 8514251-8 (Version None)
Quarter: 2012Q3

REPORT INFORMATION
  Report Type: 
  Country: None (occurrence: None)
  Receive Date: 20120717
  Receipt Date: 20120715
  Transmission Date: 20120928
  Serious: Yes (Other)
  Sender: FDA-Public Use
  Company Number: AU-PFIZER INC-2012169956

PATIENT
  Sex: Female

DRUGS (1)
  1. XANAX [Suspect]
     Indication: ANXIETY
     Dosage: UNK
     Route: 048

REACTIONS (4)
  - DYSGEUSIA [None]
  - DEPENDENCE [None]
  - HALLUCINATION [None]
  - ANGER [None]
